FAERS Safety Report 15350654 (Version 1)
Quarter: 2018Q4

REPORT INFORMATION
  Report Type: Spontaneous
  Country: ES (occurrence: ES)
  Receive Date: 20180905
  Receipt Date: 20180905
  Transmission Date: 20190204
  Serious: Yes (Other)
  Sender: FDA-Public Use
  Company Number: ES-SUN PHARMACEUTICAL INDUSTRIES LTD-2018RR-183488

PATIENT
  Age: 89 Year
  Sex: Male

DRUGS (7)
  1. BLOKIUM 100 [Concomitant]
     Indication: HYPERTENSION
     Dosage: 1/2-0-0
     Route: 048
     Dates: start: 2001
  2. ENALAPRIL 5 MG [Concomitant]
     Indication: PRODUCT USED FOR UNKNOWN INDICATION
     Dosage: 1/2-0-0
     Route: 048
  3. OMEPRAZOLE. [Suspect]
     Active Substance: OMEPRAZOLE
     Indication: PRODUCT USED FOR UNKNOWN INDICATION
     Dosage: 0-1-0
     Route: 048
     Dates: start: 2006, end: 20180423
  4. METFORMINA 875 [Suspect]
     Active Substance: METFORMIN HYDROCHLORIDE
     Indication: DIABETES MELLITUS
     Dosage: 1-0-1
     Route: 048
     Dates: start: 20101029
  5. DOLOCATIL 1GR [Concomitant]
     Indication: PRODUCT USED FOR UNKNOWN INDICATION
     Dosage: 1-0-0
     Route: 048
  6. TRANKIMAZIN 0,50 MG COMPRIMIDOS [Concomitant]
     Indication: PRODUCT USED FOR UNKNOWN INDICATION
     Dosage: 1-0-1
     Route: 048
  7. ALDOCUMAR 5 MG COMPRIMIDOS [Concomitant]
     Indication: ATRIAL FIBRILLATION
     Dosage: 0-1-0 (DO 0-1/2-0) ()
     Route: 048
     Dates: start: 2004

REACTIONS (1)
  - Vitamin B12 deficiency [Unknown]

NARRATIVE: CASE EVENT DATE: 2018
